FAERS Safety Report 9688449 (Version 3)
Quarter: 2013Q4

REPORT INFORMATION
  Report Type: Report from Study
  Country: ES (occurrence: ES)
  Receive Date: 20131114
  Receipt Date: 20131209
  Transmission Date: 20140711
  Serious: Yes (Hospitalization)
  Sender: FDA-Public Use
  Company Number: ES-PFIZER INC-2013291739

PATIENT
  Age: 73 Year
  Sex: Male

DRUGS (5)
  1. BOSUTINIB [Suspect]
     Indication: CHRONIC MYELOID LEUKAEMIA
     Dosage: 500 MG/DAY
     Route: 048
     Dates: start: 20130802, end: 201308
  2. BOSUTINIB [Suspect]
     Dosage: 400 MG/DAY
     Route: 048
     Dates: start: 201308, end: 201309
  3. BOSUTINIB [Suspect]
     Dosage: 400 MG/DAY
     Route: 048
     Dates: start: 20130913, end: 201310
  4. ALLOPURINOL [Concomitant]
     Indication: HYPERURICAEMIA
     Dosage: 100 MG, DAILY
     Route: 048
  5. DASATINIB [Concomitant]
     Dosage: UNK

REACTIONS (4)
  - Cerebral ischaemia [Unknown]
  - Vertigo [Unknown]
  - Dizziness [Recovered/Resolved]
  - Colitis [Recovered/Resolved]
